FAERS Safety Report 9143505 (Version 1)
Quarter: 2013Q1

REPORT INFORMATION
  Report Type: Spontaneous
  Country: FR (occurrence: FR)
  Receive Date: 20130306
  Receipt Date: 20130306
  Transmission Date: 20140127
  Serious: Yes (Other)
  Sender: FDA-Public Use
  Company Number: FR-ROCHE-1197171

PATIENT
  Age: 76 Year
  Sex: Male

DRUGS (2)
  1. ROCEPHINE [Suspect]
     Indication: RENAL CYST INFECTION
     Route: 065
  2. ROCEPHINE [Suspect]
     Route: 065
     Dates: start: 201202

REACTIONS (1)
  - Arthralgia [Not Recovered/Not Resolved]
